FAERS Safety Report 4784829-6 (Version None)
Quarter: 2005Q3

REPORT INFORMATION
  Report Type: 
  Country: None (occurrence: None)
  Receive Date: 20050928
  Receipt Date: 20050919
  Transmission Date: 20060218
  Serious: Yes (Other)
  Sender: FDA-Public Use
  Company Number: BR-2005-019651

PATIENT
  Age: 16 Year
  Sex: Female

DRUGS (4)
  1. YASMIN [Suspect]
     Indication: POLYCYSTIC OVARIES
     Dosage: 1 TAB(S), ORAL
     Route: 048
     Dates: start: 20050801, end: 20050901
  2. UNSPECIFIED DRUG [Suspect]
     Indication: HYPERSENSITIVITY
     Dosage: UNK, INJECTION; 1 TAB(S), ORAL
     Route: 048
     Dates: start: 20050901, end: 20050901
  3. UNSPECIFIED DRUG [Suspect]
     Indication: HYPERSENSITIVITY
     Dosage: UNK, INJECTION; 1 TAB(S), ORAL
     Route: 048
     Dates: start: 20050901
  4. FERROUS SULFATE TAB [Suspect]
     Indication: ANAEMIA
     Dosage: ORAL
     Route: 048
     Dates: end: 20050901

REACTIONS (7)
  - BREAST DISCHARGE [None]
  - DIZZINESS [None]
  - EPISTAXIS [None]
  - ERYTHEMA [None]
  - HEPATITIS [None]
  - HYPERSENSITIVITY [None]
  - PRURITUS [None]
